FAERS Safety Report 26066101 (Version 1)
Quarter: 2025Q4

REPORT INFORMATION
  Report Type: Spontaneous
  Country: CN (occurrence: CN)
  Receive Date: 20251119
  Receipt Date: 20251119
  Transmission Date: 20260118
  Serious: Yes (Other)
  Sender: TEVA
  Company Number: CN-TEVA-VS-3392824

PATIENT
  Age: 68 Year
  Sex: Female

DRUGS (2)
  1. BENDAMUSTINE [Suspect]
     Active Substance: BENDAMUSTINE
     Indication: Follicular lymphoma stage IV
     Dosage: C1 137MG D2-3, C2-C5 137MG D1-2, C6:137MG D2-3
     Route: 065
  2. OBINUTUZUMAB [Suspect]
     Active Substance: OBINUTUZUMAB
     Indication: Follicular lymphoma stage IV
     Dosage: C1:1000MG D1,8,15, C6: 1000MG D1
     Route: 065
     Dates: start: 202312, end: 202510

REACTIONS (2)
  - Interstitial lung disease [Unknown]
  - Coronavirus infection [Unknown]

NARRATIVE: CASE EVENT DATE: 20230101
